FAERS Safety Report 18503099 (Version 1)
Quarter: 2020Q4

REPORT INFORMATION
  Report Type: Spontaneous
  Country: US (occurrence: US)
  Receive Date: 20201114
  Receipt Date: 20201114
  Transmission Date: 20210114
  Serious: No
  Sender: FDA-Public Use
  Company Number: US-ELI_LILLY_AND_COMPANY-US202011003045

PATIENT
  Sex: Male

DRUGS (3)
  1. HUMATROPE [Suspect]
     Active Substance: SOMATROPIN
     Dosage: 1.5 MG, DAILY
     Route: 058
  2. HUMATROPE [Suspect]
     Active Substance: SOMATROPIN
     Indication: HYPOPITUITARISM
     Dosage: 1.4 MG, DAILY
     Route: 058
     Dates: start: 201912
  3. HUMATROPE [Suspect]
     Active Substance: SOMATROPIN
     Dosage: 1.7 MG, DAILY
     Route: 058

REACTIONS (1)
  - Incorrect dose administered [Unknown]
